FAERS Safety Report 17827861 (Version 8)
Quarter: 2022Q4

REPORT INFORMATION
  Report Type: Spontaneous
  Country: US (occurrence: US)
  Receive Date: 20200527
  Receipt Date: 20221111
  Transmission Date: 20230112
  Serious: No
  Sender: FDA-Public Use
  Company Number: US-SA-2020SA133894

PATIENT
  Age: 25 Year
  Sex: Female

DRUGS (1)
  1. DUPIXENT [Suspect]
     Active Substance: DUPILUMAB
     Indication: Psoriasis
     Dosage: 300 MG, QOW
     Route: 058
     Dates: start: 20200119

REACTIONS (10)
  - Weight increased [Unknown]
  - Alopecia [Unknown]
  - Vertigo [Unknown]
  - Pain [Unknown]
  - Skin burning sensation [Unknown]
  - Pruritus [Unknown]
  - Eczema [Unknown]
  - Acne [Unknown]
  - Skin discolouration [Unknown]
  - Product use in unapproved indication [Unknown]

NARRATIVE: CASE EVENT DATE: 20200101
